FAERS Safety Report 9707654 (Version 1)
Quarter: 2013Q4

REPORT INFORMATION
  Report Type: Spontaneous
  Country: US (occurrence: US)
  Receive Date: 20131125
  Receipt Date: 20131125
  Transmission Date: 20140711
  Serious: No
  Sender: FDA-Public Use
  Company Number: US-TEVA-377100USA

PATIENT
  Age: 19 Year
  Sex: Female
  Weight: 80.36 kg

DRUGS (3)
  1. PARAGARD 380A [Suspect]
     Indication: CONTRACEPTION
     Route: 015
     Dates: start: 20121026, end: 20121214
  2. PARAGARD 380A [Suspect]
     Route: 015
     Dates: start: 20121214
  3. DEPO PROVERA [Concomitant]
     Dates: start: 20120812

REACTIONS (3)
  - Device expulsion [Recovered/Resolved]
  - Vaginal haemorrhage [Unknown]
  - Dyspareunia [Recovered/Resolved]
